FAERS Safety Report 11112409 (Version 4)
Quarter: 2023Q2

REPORT INFORMATION
  Report Type: Report from Study
  Country: US (occurrence: US)
  Receive Date: 20150514
  Receipt Date: 20230615
  Transmission Date: 20230721
  Serious: Yes (Hospitalization, Disabling, Other)
  Sender: FDA-Public Use
  Company Number: US-SA-2015SA061651

PATIENT
  Age: 25 Year
  Sex: Male

DRUGS (3)
  1. ALGLUCOSIDASE ALFA [Suspect]
     Active Substance: ALGLUCOSIDASE ALFA
     Indication: Glycogen storage disease type II
     Dosage: 550 MG,QOW
     Route: 041
     Dates: start: 200606
  2. ALGLUCOSIDASE ALFA [Suspect]
     Active Substance: ALGLUCOSIDASE ALFA
     Dosage: 550 MG,QOW
     Route: 041
     Dates: start: 200606
  3. ALGLUCOSIDASE ALFA [Suspect]
     Active Substance: ALGLUCOSIDASE ALFA
     Dosage: 20 MG/KG,QOW
     Route: 041
     Dates: start: 20130111

REACTIONS (15)
  - Unresponsive to stimuli [Recovering/Resolving]
  - Cardiac disorder [Unknown]
  - Loss of consciousness [Unknown]
  - Disability [Unknown]
  - Pneumothorax [Unknown]
  - Chest pain [Unknown]
  - Dyspnoea [Unknown]
  - Ventricular tachycardia [Recovered/Resolved]
  - Ventricular fibrillation [Recovered/Resolved]
  - Arrhythmia [Unknown]
  - Syncope [Unknown]
  - Shock [Unknown]
  - Device malfunction [Not Recovered/Not Resolved]
  - Dizziness [Unknown]
  - Inappropriate schedule of product administration [Unknown]

NARRATIVE: CASE EVENT DATE: 20110101
